FAERS Safety Report 9767361 (Version 3)
Quarter: 2014Q1

REPORT INFORMATION
  Report Type: Report from Study
  Country: US (occurrence: US)
  Receive Date: 20131217
  Receipt Date: 20140131
  Transmission Date: 20141002
  Serious: No
  Sender: FDA-Public Use
  Company Number: US-VERTEX PHARMACEUTICALS INC-2013-011807

PATIENT
  Age: 49 Year
  Sex: Female
  Weight: 79.82 kg

DRUGS (4)
  1. VX-950 (TELAPREVIR) [Suspect]
     Indication: HEPATITIS C
     Dosage: 750 MG, TID
     Route: 048
     Dates: start: 20131206, end: 20140114
  2. RIBASPHERE [Suspect]
     Indication: HEPATITIS C
     Dosage: 1 DF, BID
     Route: 048
     Dates: start: 20131206, end: 20140114
  3. PEGASYS [Suspect]
     Indication: HEPATITIS C
     Dosage: 180 ?G, QW
     Route: 058
     Dates: start: 20131206, end: 20140114
  4. METAMUCIL [Concomitant]
     Indication: FAECES HARD
     Route: 048

REACTIONS (13)
  - Dyspnoea [Not Recovered/Not Resolved]
  - Photophobia [Not Recovered/Not Resolved]
  - Dyspepsia [Not Recovered/Not Resolved]
  - Weight fluctuation [Unknown]
  - Scratch [Not Recovered/Not Resolved]
  - Fatigue [Not Recovered/Not Resolved]
  - Rash papular [Not Recovered/Not Resolved]
  - Rash generalised [Recovered/Resolved]
  - Nausea [Not Recovered/Not Resolved]
  - Anal pruritus [Not Recovered/Not Resolved]
  - Dry skin [Not Recovered/Not Resolved]
  - Red blood cell count decreased [Unknown]
  - Dysgeusia [Recovered/Resolved]
